FAERS Safety Report 7009810-8 (Version None)
Quarter: 2010Q3

REPORT INFORMATION
  Report Type: 
  Country: None (occurrence: None)
  Receive Date: 20100923
  Receipt Date: 20100917
  Transmission Date: 20110219
  Serious: Yes (Death, Other)
  Sender: FDA-Public Use
  Company Number: IT-CELGENEUS-083-21880-10081226

PATIENT
  Sex: Male
  Weight: 69 kg

DRUGS (14)
  1. REVLIMID [Suspect]
     Indication: MULTIPLE MYELOMA
     Route: 048
     Dates: start: 20100428, end: 20100518
  2. REVLIMID [Suspect]
     Route: 048
     Dates: start: 20100604, end: 20100615
  3. DEXAMETHASONE [Suspect]
     Indication: MULTIPLE MYELOMA
     Route: 048
     Dates: start: 20100428, end: 20100527
  4. DEXAMETHASONE [Suspect]
     Route: 048
     Dates: start: 20100529, end: 20100615
  5. CLEXANE [Concomitant]
     Indication: THROMBOSIS PROPHYLAXIS
     Route: 065
     Dates: start: 20100505
  6. PARIET [Concomitant]
     Indication: GASTRITIS PROPHYLAXIS
     Route: 065
     Dates: start: 20080601
  7. BACTRIM [Concomitant]
     Indication: PROPHYLAXIS
     Route: 048
     Dates: start: 20080601, end: 20100616
  8. ZYLORIC [Concomitant]
     Indication: PROPHYLAXIS
     Route: 065
     Dates: start: 20080601
  9. FOLINA [Concomitant]
     Dates: start: 20091201
  10. ARANESP [Concomitant]
     Route: 065
     Dates: start: 20100505
  11. MYELOSTIM [Concomitant]
     Route: 065
     Dates: start: 20100604
  12. DURAGESIC-100 [Concomitant]
     Indication: PAIN
     Route: 065
     Dates: start: 20100201
  13. RED BLOOD CELLS [Concomitant]
     Route: 051
     Dates: start: 20100604, end: 20100604
  14. RED BLOOD CELLS [Concomitant]
     Route: 051
     Dates: start: 20100512, end: 20100512

REACTIONS (3)
  - CARDIAC ARREST [None]
  - CARDIOPULMONARY FAILURE [None]
  - PNEUMONITIS [None]
